FAERS Safety Report 18010815 (Version 2)
Quarter: 2020Q3

REPORT INFORMATION
  Report Type: Spontaneous
  Country: US (occurrence: US)
  Receive Date: 20200711
  Receipt Date: 20200728
  Transmission Date: 20201103
  Serious: Yes (Hospitalization, Other)
  Sender: FDA-Public Use
  Company Number: US-MACLEODS PHARMACEUTICALS US LTD-MAC2020027097

PATIENT

DRUGS (2)
  1. DOXYCYCLINE. [Suspect]
     Active Substance: DOXYCYCLINE
     Indication: PNEUMONIA
     Dosage: UNK, EVERY
     Route: 065
  2. LEVOFLOXACIN. [Suspect]
     Active Substance: LEVOFLOXACIN
     Indication: PNEUMONIA
     Dosage: UNK, QD,
     Route: 048

REACTIONS (5)
  - Rhabdomyolysis [Recovered/Resolved]
  - Transaminases increased [Unknown]
  - Thrombocytopenia [Unknown]
  - Dermatomyositis [Recovering/Resolving]
  - Drug ineffective [Recovered/Resolved]
